FAERS Safety Report 9805827 (Version 1)
Quarter: 2014Q1

REPORT INFORMATION
  Report Type: Spontaneous
  Country: US (occurrence: None)
  Receive Date: 20140107
  Receipt Date: 20140107
  Transmission Date: 20141002
  Serious: Yes (Death)
  Sender: FDA-Public Use
  Company Number: SYM-2013-14475

PATIENT
  Age: 86 Year
  Sex: Male

DRUGS (1)
  1. XENAZINE (TETRABENAZINE) (12.5 MILLIGRAM, TABLET) (TETRABENAZINE) [Suspect]
     Indication: TORTICOLLIS
     Dosage: 25 MG, 1 IN 1 D
     Route: 048
     Dates: start: 201209, end: 20131223

REACTIONS (1)
  - Death [None]
